FAERS Safety Report 19949296 (Version 1)
Quarter: 2021Q4

REPORT INFORMATION
  Report Type: Spontaneous
  Country: US (occurrence: US)
  Receive Date: 20211012
  Receipt Date: 20211012
  Transmission Date: 20220303
  Serious: Yes (Disabling)
  Sender: FDA-Public Use
  Company Number: None

PATIENT
  Age: 38 Year
  Sex: Female
  Weight: 58.5 kg

DRUGS (4)
  1. DEXTROAMPHET SACCHARAT, AMPHET ASPARTATE, DEXTROAMPHET SULFATE AND AMP [Suspect]
     Active Substance: AMPHETAMINE ASPARTATE\AMPHETAMINE SULFATE\DEXTROAMPHETAMINE SACCHARATE\DEXTROAMPHETAMINE SULFATE
     Indication: Attention deficit hyperactivity disorder
     Dates: start: 20210910, end: 20211004
  2. VITAMINS [Concomitant]
     Active Substance: VITAMINS
  3. ASHWAGANDA TINCTURE [Concomitant]
  4. MILKY OATS TINCTURE [Concomitant]

REACTIONS (7)
  - Product substitution issue [None]
  - Depression [None]
  - Malaise [None]
  - Therapy interrupted [None]
  - Product complaint [None]
  - Drug ineffective [None]
  - Therapeutic response changed [None]

NARRATIVE: CASE EVENT DATE: 20211005
